FAERS Safety Report 8415390-2 (Version None)
Quarter: 2012Q2

REPORT INFORMATION
  Report Type: 
  Country: None (occurrence: None)
  Receive Date: 20120323
  Receipt Date: 20111209
  Transmission Date: 20120825
  Serious: Yes (Other)
  Sender: FDA-Public Use
  Company Number: 163-21880-11121020

PATIENT
  Age: 85 Year
  Sex: Male
  Weight: 78 kg

DRUGS (1)
  1. REVLIMID [Suspect]
     Indication: LYMPHOCYTIC LEUKAEMIA
     Dosage: 10 MG, DAILY FOR 21 DAYS 4 WEEKS, PO
     Route: 048
     Dates: start: 20111114

REACTIONS (5)
  - ANAEMIA [None]
  - NAUSEA [None]
  - PRURITUS [None]
  - PLATELET COUNT DECREASED [None]
  - EPISTAXIS [None]
